FAERS Safety Report 7278556-3 (Version None)
Quarter: 2011Q1

REPORT INFORMATION
  Report Type: 
  Country: None (occurrence: None)
  Receive Date: 20110207
  Receipt Date: 20110128
  Transmission Date: 20110831
  Serious: Yes (Other)
  Sender: FDA-Public Use
  Company Number: PHHY2011JP06794

PATIENT
  Age: 80 Year
  Sex: Male

DRUGS (4)
  1. DEXAMETHASONE [Suspect]
     Dosage: 1 MG/DAY
     Dates: start: 20090601
  2. DOCETAXEL [Suspect]
     Indication: PROSTATIC SPECIFIC ANTIGEN INCREASED
     Dosage: UNK
  3. ESTRAMUSTINE [Suspect]
     Indication: PROSTATIC SPECIFIC ANTIGEN INCREASED
  4. DEXAMETHASONE [Suspect]
     Indication: PROSTATIC SPECIFIC ANTIGEN INCREASED
     Dosage: UNK

REACTIONS (10)
  - WEIGHT DECREASED [None]
  - SKIN EROSION [None]
  - ERYTHEMA OF EYELID [None]
  - OEDEMA PERIPHERAL [None]
  - NICOTINIC ACID DEFICIENCY [None]
  - ERYTHEMA [None]
  - NAIL DISORDER [None]
  - FLUSHING [None]
  - HYPOPHAGIA [None]
  - ANAEMIA [None]
